FAERS Safety Report 6884628-5 (Version None)
Quarter: 2010Q3

REPORT INFORMATION
  Report Type: 
  Country: None (occurrence: None)
  Receive Date: 20100729
  Receipt Date: 20070731
  Transmission Date: 20110219
  Serious: No
  Sender: FDA-Public Use
  Company Number: US-PFIZER INC-2007061476

PATIENT
  Sex: Male

DRUGS (8)
  1. CELEBREX [Suspect]
     Indication: ARTHRITIS
     Dates: start: 20020101, end: 20070501
  2. CELEBREX [Suspect]
     Indication: PLANTAR FASCIITIS
  3. OMEPRAZOLE [Suspect]
     Indication: GASTROOESOPHAGEAL REFLUX DISEASE
     Dates: start: 20061001, end: 20070601
  4. PLAVIX [Concomitant]
  5. UROXATRAL [Concomitant]
  6. DILANTIN [Concomitant]
  7. SIMVASTATIN [Concomitant]
  8. VIOXX [Concomitant]

REACTIONS (7)
  - ABDOMINAL DISCOMFORT [None]
  - BLOOD CREATINE INCREASED [None]
  - DRUG INTOLERANCE [None]
  - GASTROOESOPHAGEAL REFLUX DISEASE [None]
  - NAUSEA [None]
  - RENAL IMPAIRMENT [None]
  - WEIGHT DECREASED [None]
